FAERS Safety Report 23138964 (Version 1)
Quarter: 2023Q4

REPORT INFORMATION
  Report Type: Spontaneous
  Country: US (occurrence: US)
  Receive Date: 20231102
  Receipt Date: 20231102
  Transmission Date: 20240110
  Serious: No
  Sender: FDA-Public Use
  Company Number: US-PFIZER INC-PV202300180368

PATIENT
  Age: 70 Year
  Sex: Female

DRUGS (1)
  1. EPINEPHRINE [Suspect]
     Active Substance: EPINEPHRINE
     Dosage: UNK

REACTIONS (5)
  - Drug hypersensitivity [Unknown]
  - Panic reaction [Unknown]
  - Anxiety [Unknown]
  - Feeling abnormal [Unknown]
  - Crying [Unknown]
